FAERS Safety Report 5162175-9 (Version None)
Quarter: 2006Q4

REPORT INFORMATION
  Report Type: 
  Country: None (occurrence: None)
  Receive Date: 20061121
  Receipt Date: 20061108
  Transmission Date: 20070319
  Serious: Yes (Other)
  Sender: FDA-Public Use
  Company Number: 2006BH014332

PATIENT
  Age: 43 Year
  Sex: Female
  Weight: 72.4 kg

DRUGS (3)
  1. LACTATED RINGERS INJECTION IN PLASTIC [Suspect]
     Indication: SALPINGOPLASTY
     Dosage: 125 ML; EVERY HR; IV
     Route: 042
     Dates: start: 20061019, end: 20061019
  2. LACTATED RINGERS INJECTION IN PLASTIC [Suspect]
     Indication: THERAPEUTIC PROCEDURE
     Dosage: 125 ML; EVERY HR; IV
     Route: 042
     Dates: start: 20061019, end: 20061019
  3. LACTATED RINGERS INJECTION IN PLASTIC [Suspect]
     Indication: VAGINOPERINEOPLASTY
     Dosage: 125 ML; EVERY HR; IV
     Route: 042
     Dates: start: 20061019, end: 20061019

REACTIONS (5)
  - CHEST DISCOMFORT [None]
  - COUGH [None]
  - DYSPNOEA [None]
  - HYPERTENSION [None]
  - INFUSION RELATED REACTION [None]
